FAERS Safety Report 18394638 (Version 1)
Quarter: 2020Q4

REPORT INFORMATION
  Report Type: Spontaneous
  Country: DE (occurrence: DE)
  Receive Date: 20201017
  Receipt Date: 20201017
  Transmission Date: 20210114
  Serious: Yes (Hospitalization, Other)
  Sender: FDA-Public Use
  Company Number: NVSC2020DE276964

PATIENT
  Age: 64 Year
  Sex: Female
  Weight: 83 kg

DRUGS (13)
  1. PANTOPRAZOLE [Concomitant]
     Active Substance: PANTOPRAZOLE
     Indication: PROPHYLAXIS
     Dosage: 40 MG, QD
     Route: 048
     Dates: start: 20190704
  2. FLUOROURACIL. [Suspect]
     Active Substance: FLUOROURACIL
     Indication: COLORECTAL CANCER METASTATIC
     Dosage: 760 MG
     Route: 040
     Dates: start: 20190902
  3. VECTIBIX [Suspect]
     Active Substance: PANITUMUMAB
     Dosage: 450 MG
     Route: 042
     Dates: start: 20200624
  4. VECTIBIX [Suspect]
     Active Substance: PANITUMUMAB
     Dosage: 500 MG
     Route: 042
     Dates: start: 20190918
  5. VECTIBIX [Suspect]
     Active Substance: PANITUMUMAB
     Indication: PRODUCT USED FOR UNKNOWN INDICATION
     Dosage: 480 MG
     Route: 042
     Dates: start: 20200219
  6. VECTIBIX [Suspect]
     Active Substance: PANITUMUMAB
     Dosage: 500 MG
     Route: 042
     Dates: start: 20200722
  7. NOVALGIN [Concomitant]
     Indication: PAIN
     Dosage: 500 MG, PRN
     Route: 065
     Dates: start: 20190826
  8. XARELTO [Concomitant]
     Active Substance: RIVAROXABAN
     Indication: PULMONARY EMBOLISM
     Dosage: 20 MG, QD
     Route: 048
     Dates: start: 20190704
  9. FLUOROURACIL. [Suspect]
     Active Substance: FLUOROURACIL
     Dosage: 4575 MG
     Route: 042
     Dates: start: 20190902
  10. FLUOROURACIL. [Suspect]
     Active Substance: FLUOROURACIL
     Dosage: 3650 MG
     Route: 042
  11. FOLINIC ACID [Suspect]
     Active Substance: LEUCOVORIN
     Indication: COLORECTAL CANCER METASTATIC
     Dosage: 760 MG
     Route: 065
     Dates: start: 20190902
  12. FOLINIC ACID [Suspect]
     Active Substance: LEUCOVORIN
     Dosage: 610 MG
     Route: 065
     Dates: start: 20191118
  13. OXALIPLATIN. [Suspect]
     Active Substance: OXALIPLATIN
     Indication: COLORECTAL CANCER METASTATIC
     Dosage: 160 MG
     Route: 065
     Dates: start: 20190902

REACTIONS (1)
  - Diarrhoea haemorrhagic [Recovered/Resolved]

NARRATIVE: CASE EVENT DATE: 20200907
